FAERS Safety Report 9822032 (Version 1)
Quarter: 2014Q1

REPORT INFORMATION
  Report Type: Spontaneous
  Country: US (occurrence: US)
  Receive Date: 20140116
  Receipt Date: 20140116
  Transmission Date: 20141002
  Serious: Yes (Hospitalization)
  Sender: FDA-Public Use
  Company Number: US-TEVA-455888USA

PATIENT
  Sex: Female
  Weight: 63.56 kg

DRUGS (3)
  1. QVAR [Suspect]
     Indication: ASTHMA
     Route: 055
  2. COUMADIN [Concomitant]
     Indication: CARDIAC DISORDER
  3. HEART MEDICATIONS [Concomitant]
     Indication: CARDIAC DISORDER

REACTIONS (4)
  - Investigation [Unknown]
  - Sensation of foreign body [Not Recovered/Not Resolved]
  - Tooth deposit [Not Recovered/Not Resolved]
  - Breath odour [Not Recovered/Not Resolved]
